FAERS Safety Report 8214334-6 (Version None)
Quarter: 2012Q1

REPORT INFORMATION
  Report Type: 
  Country: None (occurrence: None)
  Receive Date: 20120316
  Receipt Date: 20120308
  Transmission Date: 20120608
  Serious: Yes (Hospitalization, Other)
  Sender: FDA-Public Use
  Company Number: BE-BAYER-2012-023326

PATIENT
  Sex: Female

DRUGS (1)
  1. YAZ [Suspect]
     Dosage: UNK
     Route: 048

REACTIONS (4)
  - SYNCOPE [None]
  - HAEMORRHAGE [None]
  - MUSCLE SPASMS [None]
  - CYANOSIS [None]
